FAERS Safety Report 10829900 (Version 1)
Quarter: 2015Q1

REPORT INFORMATION
  Report Type: Report from Study
  Country: US (occurrence: US)
  Receive Date: 20150219
  Receipt Date: 20150219
  Transmission Date: 20150721
  Serious: No
  Sender: FDA-Public Use
  Company Number: US-ABBVIE-14P-163-1189235-00

PATIENT
  Age: 58 Year
  Sex: Female

DRUGS (3)
  1. HUMIRA [Suspect]
     Active Substance: ADALIMUMAB
     Indication: COLITIS ULCERATIVE
     Route: 058
     Dates: start: 20130716, end: 20130716
  2. HUMIRA [Suspect]
     Active Substance: ADALIMUMAB
  3. HUMIRA [Suspect]
     Active Substance: ADALIMUMAB
     Dates: end: 20131227

REACTIONS (3)
  - Paraesthesia [Not Recovered/Not Resolved]
  - Vision blurred [Not Recovered/Not Resolved]
  - Hypoaesthesia [Not Recovered/Not Resolved]

NARRATIVE: CASE EVENT DATE: 201311
